FAERS Safety Report 6855845-5 (Version None)
Quarter: 2010Q3

REPORT INFORMATION
  Report Type: 
  Country: None (occurrence: None)
  Receive Date: 20100715
  Receipt Date: 20100715
  Transmission Date: 20110219
  Serious: Yes (Disabling, Other)
  Sender: FDA-Public Use
  Company Number: None

PATIENT
  Age: 63 Year
  Sex: Male
  Weight: 70.5 kg

DRUGS (2)
  1. ATACAND [Suspect]
     Indication: HYPERTENSION
     Dosage: 16 AND 32 MG DAILY ORAL
     Route: 048
     Dates: start: 20091201
  2. ATACAND [Suspect]
     Indication: HYPERTENSION
     Dosage: 16 AND 32 MG DAILY ORAL
     Route: 048
     Dates: start: 20100601

REACTIONS (12)
  - DIZZINESS [None]
  - FATIGUE [None]
  - HYPERKALAEMIA [None]
  - HYPOTENSION [None]
  - MUSCLE SPASMS [None]
  - NAUSEA [None]
  - OEDEMA PERIPHERAL [None]
  - PAIN [None]
  - RASH [None]
  - RENAL IMPAIRMENT [None]
  - SINUSITIS [None]
  - VISUAL IMPAIRMENT [None]
